FAERS Safety Report 16920514 (Version 1)
Quarter: 2019Q4

REPORT INFORMATION
  Report Type: Spontaneous
  Country: US (occurrence: US)
  Receive Date: 20191015
  Receipt Date: 20191015
  Transmission Date: 20200122
  Serious: No
  Sender: FDA-Public Use
  Company Number: US-MISSION PHARMACAL COMPANY-2075655

PATIENT
  Age: 30 Year
  Sex: Female

DRUGS (1)
  1. THIOLA [Suspect]
     Active Substance: TIOPRONIN
     Indication: CYSTINURIA
     Route: 048
     Dates: start: 20190309

REACTIONS (4)
  - Hepatic steatosis [Unknown]
  - Infection [Unknown]
  - Post procedural complication [Unknown]
  - Peptic ulcer [Unknown]
